FAERS Safety Report 9043046 (Version 1)
Quarter: 2013Q1

REPORT INFORMATION
  Report Type: Report from Study
  Country: US (occurrence: US)
  Receive Date: 20130129
  Receipt Date: 20130129
  Transmission Date: 20140127
  Serious: No
  Sender: FDA-Public Use
  Company Number: US-ABBOTT-12P-163-0912475-00

PATIENT
  Age: 57 Year
  Sex: Female
  Weight: 81.72 kg

DRUGS (1)
  1. HUMIRA 40 MG/ 0.8 ML PRE-FILLED SYRINGE [Suspect]
     Indication: CROHN^S DISEASE
     Dates: start: 20120302

REACTIONS (2)
  - Arthritis [Recovering/Resolving]
  - Arthralgia [Recovering/Resolving]
